FAERS Safety Report 9227593 (Version 1)
Quarter: 2013Q2

REPORT INFORMATION
  Report Type: Spontaneous
  Country: US (occurrence: US)
  Receive Date: 20130412
  Receipt Date: 20130412
  Transmission Date: 20140414
  Serious: Yes (Death)
  Sender: FDA-Public Use
  Company Number: US-PFIZER INC-2013113670

PATIENT
  Age: 73 Year
  Sex: Female
  Weight: 97.05 kg

DRUGS (2)
  1. TIKOSYN [Suspect]
     Indication: ATRIAL FIBRILLATION
     Dosage: 250 UG, 2X/DAY
     Route: 048
     Dates: start: 200911
  2. DILTIAZEM [Concomitant]
     Dosage: UNK

REACTIONS (1)
  - Death [Fatal]
